FAERS Safety Report 10268766 (Version 2)
Quarter: 2014Q3

REPORT INFORMATION
  Report Type: Spontaneous
  Country: FR (occurrence: FR)
  Receive Date: 20140630
  Receipt Date: 20140828
  Transmission Date: 20150326
  Serious: Yes (Hospitalization, Disabling)
  Sender: FDA-Public Use
  Company Number: PHHY2014FR078050

PATIENT
  Age: 15 Year
  Sex: Male
  Weight: 42.5 kg

DRUGS (1)
  1. OMNITROPE [Suspect]
     Active Substance: SOMATROPIN
     Indication: GROWTH HORMONE DEFICIENCY
     Dosage: 0.037 MG/KG, QD
     Route: 058
     Dates: start: 20131203, end: 20140310

REACTIONS (2)
  - Hepatic mass [Recovering/Resolving]
  - Focal nodular hyperplasia [Recovering/Resolving]

NARRATIVE: CASE EVENT DATE: 201403
